FAERS Safety Report 10110469 (Version 2)
Quarter: 2014Q3

REPORT INFORMATION
  Report Type: Spontaneous
  Country: US (occurrence: None)
  Receive Date: 20140421
  Receipt Date: 20140722
  Transmission Date: 20150326
  Serious: Yes (Other)
  Sender: FDA-Public Use
  Company Number: AEGR000333

PATIENT
  Age: 65 Year
  Sex: Male
  Weight: 87.1 kg

DRUGS (6)
  1. ZETIA [Concomitant]
     Active Substance: EZETIMIBE
  2. LIVALO (PITAVASTATIN CALCIUM) [Concomitant]
  3. ATORVASTATIN (ATORVASTATIN) [Concomitant]
     Active Substance: ATORVASTATIN
  4. JUXTAPID [Suspect]
     Active Substance: LOMITAPIDE MESYLATE
     Indication: TYPE IIA HYPERLIPIDAEMIA
     Route: 048
     Dates: start: 201310, end: 20140324
  5. VIT D3 (COLECALCIFEROL) [Concomitant]
  6. ASPIRIN. [Concomitant]
     Active Substance: ASPIRIN

REACTIONS (3)
  - Inappropriate schedule of drug administration [None]
  - Diarrhoea [None]
  - Abdominal pain upper [None]

NARRATIVE: CASE EVENT DATE: 201310
